FAERS Safety Report 17080774 (Version 1)
Quarter: 2019Q4

REPORT INFORMATION
  Report Type: Spontaneous
  Country: US (occurrence: US)
  Receive Date: 20191126
  Receipt Date: 20191126
  Transmission Date: 20200122
  Serious: Yes (Hospitalization)
  Sender: FDA-Public Use
  Company Number: None

PATIENT
  Age: 66 Year
  Sex: Male
  Weight: 109 kg

DRUGS (23)
  1. INSULIN DETEMIR [Concomitant]
     Active Substance: INSULIN DETEMIR
  2. KCENTRA [Suspect]
     Active Substance: COAGULATION FACTOR IX HUMAN\COAGULATION FACTOR VII HUMAN\COAGULATION FACTOR X HUMAN\PROTEIN C\PROTEIN S HUMAN\PROTHROMBIN
     Indication: HAEMOPTYSIS
     Dosage: ?          OTHER FREQUENCY:ONCE;?
     Route: 042
     Dates: start: 20190919, end: 20190919
  3. AGGRENOX [Concomitant]
     Active Substance: ASPIRIN\DIPYRIDAMOLE
     Dates: end: 20190919
  4. GABAPENTIN. [Concomitant]
     Active Substance: GABAPENTIN
  5. SUCRALFATE. [Concomitant]
     Active Substance: SUCRALFATE
  6. LABETALOL [Concomitant]
     Active Substance: LABETALOL\LABETALOL HYDROCHLORIDE
  7. TAMSULOSIN [Concomitant]
     Active Substance: TAMSULOSIN
  8. MONTELUKAST [Concomitant]
     Active Substance: MONTELUKAST SODIUM
  9. SPIRONOLACTONE. [Concomitant]
     Active Substance: SPIRONOLACTONE
  10. BUDESONIDE. [Concomitant]
     Active Substance: BUDESONIDE
  11. TRAMADOL. [Concomitant]
     Active Substance: TRAMADOL
  12. BUMETANIDE. [Concomitant]
     Active Substance: BUMETANIDE
  13. NTIROGYLCERIN [Concomitant]
  14. SERTRALINE [Concomitant]
     Active Substance: SERTRALINE HYDROCHLORIDE
  15. ALBUTEROL. [Concomitant]
     Active Substance: ALBUTEROL
  16. BREO ELLIPTA [Concomitant]
     Active Substance: FLUTICASONE FUROATE\VILANTEROL TRIFENATATE
  17. PREDNISONE. [Concomitant]
     Active Substance: PREDNISONE
  18. UMECLIDINIUM [Concomitant]
     Active Substance: UMECLIDINIUM BROMIDE
  19. EZETIMIBE. [Concomitant]
     Active Substance: EZETIMIBE
  20. XARELTO [Suspect]
     Active Substance: RIVAROXABAN
     Indication: ATRIAL FIBRILLATION
     Route: 048
     Dates: start: 20190122, end: 20191022
  21. INSULIN LISPRO [Concomitant]
     Active Substance: INSULIN LISPRO
  22. OMEPRAZOLE. [Concomitant]
     Active Substance: OMEPRAZOLE
  23. BACLOFEN. [Concomitant]
     Active Substance: BACLOFEN

REACTIONS (7)
  - Sepsis [None]
  - Pneumonia [None]
  - Fall [None]
  - Haemoptysis [None]
  - Syncope [None]
  - Deep vein thrombosis [None]
  - Pulmonary artery thrombosis [None]

NARRATIVE: CASE EVENT DATE: 20191022
